FAERS Safety Report 17086664 (Version 3)
Quarter: 2019Q4

REPORT INFORMATION
  Report Type: Report from Study
  Country: AU (occurrence: AU)
  Receive Date: 20191128
  Receipt Date: 20191222
  Transmission Date: 20200122
  Serious: Yes (Hospitalization, Other)
  Sender: FDA-Public Use
  Company Number: AU-BIOGEN-2019BI00743118

PATIENT
  Age: 42 Year
  Sex: Female

DRUGS (10)
  1. TECFIDERA [Suspect]
     Active Substance: DIMETHYL FUMARATE
     Dosage: INTENTIONAL MISUSE
     Route: 048
     Dates: start: 20190521, end: 20190707
  2. TECFIDERA [Suspect]
     Active Substance: DIMETHYL FUMARATE
     Route: 048
     Dates: start: 20191213
  3. TECFIDERA [Suspect]
     Active Substance: DIMETHYL FUMARATE
     Dosage: MORNING DOSE
     Route: 048
     Dates: start: 20190708
  4. THYROXINE [Concomitant]
     Active Substance: LEVOTHYROXINE
     Dosage: MONDAY TO SATURDAY DOSE
  5. STEROID EYE DROPS [Concomitant]
     Route: 047
  6. DEXAMETHASONE. [Concomitant]
     Active Substance: DEXAMETHASONE
     Route: 065
  7. TECFIDERA [Suspect]
     Active Substance: DIMETHYL FUMARATE
     Dosage: EVENING DOSE
     Route: 048
     Dates: start: 20190708
  8. TECFIDERA [Suspect]
     Active Substance: DIMETHYL FUMARATE
     Dosage: MAINTENANCE DOSE
     Route: 048
     Dates: start: 20190521
  9. THYROXINE [Concomitant]
     Active Substance: LEVOTHYROXINE
     Dosage: SUNDAY DOSE
     Route: 065
  10. TECFIDERA [Suspect]
     Active Substance: DIMETHYL FUMARATE
     Indication: MULTIPLE SCLEROSIS
     Route: 048
     Dates: start: 20190505

REACTIONS (14)
  - Headache [Recovered/Resolved]
  - Prescribed underdose [Not Recovered/Not Resolved]
  - Flushing [Recovered/Resolved with Sequelae]
  - Eye prosthesis insertion [Unknown]
  - Post procedural swelling [Not Recovered/Not Resolved]
  - Diplopia [Not Recovered/Not Resolved]
  - Autoimmune disorder [Not Recovered/Not Resolved]
  - Intentional underdose [Unknown]
  - Burning sensation [Not Recovered/Not Resolved]
  - Weight increased [Not Recovered/Not Resolved]
  - Complication associated with device [Not Recovered/Not Resolved]
  - Fibrosis [Unknown]
  - Dehydration [Not Recovered/Not Resolved]
  - Mandibular mass [Unknown]

NARRATIVE: CASE EVENT DATE: 2019
